FAERS Safety Report 9338798 (Version 1)
Quarter: 2013Q2

REPORT INFORMATION
  Report Type: Spontaneous
  Country: US (occurrence: None)
  Receive Date: 20130605
  Receipt Date: 20130605
  Transmission Date: 20140414
  Serious: Yes (Other)
  Sender: FDA-Public Use
  Company Number: None

PATIENT
  Age: 31 Year
  Sex: Female
  Weight: 58.51 kg

DRUGS (1)
  1. NEXT CHOICE ONE 1.5 MG WATSON LABORATORIES [Suspect]
     Dosage: 1 DOSE 1 TIME
     Route: 048
     Dates: start: 20130428, end: 20130428

REACTIONS (2)
  - Pain in extremity [None]
  - Paraesthesia [None]
